FAERS Safety Report 7827676-0 (Version None)
Quarter: 2011Q4

REPORT INFORMATION
  Report Type: 
  Country: None (occurrence: None)
  Receive Date: 20111020
  Receipt Date: 20111014
  Transmission Date: 20120403
  Serious: Yes (Other)
  Sender: FDA-Public Use
  Company Number: FR-AMGEN-FRACT2011046455

PATIENT
  Age: 69 Year
  Sex: Male

DRUGS (8)
  1. LEUPROLIDE ACETATE [Concomitant]
     Dosage: 11.25 MG, Q3MO
     Route: 030
  2. DENOSUMAB [Suspect]
     Indication: PROSTATE CANCER
     Dosage: 120 MG, QWK
     Route: 058
     Dates: start: 20110208, end: 20110823
  3. BICALUTAMIDE [Concomitant]
     Dosage: 150 MG, UNK
     Route: 048
     Dates: start: 20020701, end: 20110405
  4. DOCETAXEL [Concomitant]
     Dosage: UNK
     Dates: start: 20110415, end: 20110906
  5. DEXARIL [Concomitant]
     Indication: RASH
     Dosage: UNK UNK, QD
     Route: 061
     Dates: start: 20110816
  6. ACETAMINOPHEN AND TRAMADOL HCL [Concomitant]
     Indication: PAIN
     Dosage: UNK UNK, PRN
     Route: 048
     Dates: start: 20110401
  7. GRANISETRON [Concomitant]
     Indication: VOMITING
     Dosage: 3 MG, Q3WK
     Route: 042
     Dates: start: 20110415, end: 20110906
  8. METHYLPREDNISOLONE [Concomitant]
     Indication: HYPERSENSITIVITY
     Dosage: 80 MG, Q3WK
     Route: 042
     Dates: start: 20110415, end: 20110906

REACTIONS (1)
  - OSTEONECROSIS OF JAW [None]
